FAERS Safety Report 21302283 (Version 2)
Quarter: 2022Q4

REPORT INFORMATION
  Report Type: Spontaneous
  Country: GB (occurrence: GB)
  Receive Date: 20220907
  Receipt Date: 20221201
  Transmission Date: 20230113
  Serious: Yes (Hospitalization)
  Sender: FDA-Public Use
  Company Number: GB-MYLANLABS-2022M1043217

PATIENT
  Sex: Male

DRUGS (2)
  1. ARIPIPRAZOLE [Suspect]
     Active Substance: ARIPIPRAZOLE
     Indication: Product used for unknown indication
     Dosage: 400 MG, QMO (DEPOT)
     Route: 065
  2. CLOZARIL [Suspect]
     Active Substance: CLOZAPINE
     Indication: Schizophrenia
     Dosage: 25 MG, BID (25 MG MORNING AND 25MG NIGHT)
     Route: 048
     Dates: start: 20220524, end: 20221104

REACTIONS (3)
  - COVID-19 [Unknown]
  - Troponin increased [Unknown]
  - Contraindicated product administered [Unknown]
